FAERS Safety Report 13872342 (Version 1)
Quarter: 2017Q3

REPORT INFORMATION
  Report Type: Spontaneous
  Country: FR (occurrence: FR)
  Receive Date: 20170816
  Receipt Date: 20170816
  Transmission Date: 20171127
  Serious: Yes (Life-Threatening, Hospitalization)
  Sender: FDA-Public Use
  Company Number: FR-PFIZER INC-2017349862

PATIENT
  Age: 41 Year
  Sex: Female

DRUGS (2)
  1. PROFENID [Suspect]
     Active Substance: KETOPROFEN
     Dosage: 100 MG, SINGLE
     Route: 030
     Dates: start: 20170330, end: 20170330
  2. ARTOTEC [Suspect]
     Active Substance: DICLOFENAC SODIUM\MISOPROSTOL
     Indication: CHEST PAIN
     Dosage: 1 DF, 2X/DAY
     Route: 048
     Dates: start: 20170330, end: 20170401

REACTIONS (3)
  - Bronchopneumopathy [Recovered/Resolved with Sequelae]
  - Septic shock [Recovered/Resolved with Sequelae]
  - Respiratory distress [Recovered/Resolved with Sequelae]

NARRATIVE: CASE EVENT DATE: 20170401
